FAERS Safety Report 6397501-6 (Version None)
Quarter: 2009Q4

REPORT INFORMATION
  Report Type: 
  Country: None (occurrence: None)
  Receive Date: 20091012
  Receipt Date: 20091001
  Transmission Date: 20100525
  Serious: Yes (Hospitalization)
  Sender: FDA-Public Use
  Company Number: US-JNJFOC-20091001076

PATIENT
  Sex: Male
  Weight: 58.1 kg

DRUGS (5)
  1. INFLIXIMAB [Suspect]
     Route: 042
     Dates: start: 20080415
  2. INFLIXIMAB [Suspect]
     Route: 042
     Dates: start: 20080415
  3. INFLIXIMAB [Suspect]
     Indication: CROHN'S DISEASE
     Route: 042
     Dates: start: 20080415
  4. AZATHIOPRINE [Concomitant]
  5. ASACOL [Concomitant]
     Route: 048

REACTIONS (1)
  - CROHN'S DISEASE [None]
